FAERS Safety Report 5353441-2 (Version None)
Quarter: 2007Q2

REPORT INFORMATION
  Report Type: 
  Country: None (occurrence: None)
  Receive Date: 20070612
  Receipt Date: 20070531
  Transmission Date: 20071010
  Serious: Yes (Other)
  Sender: FDA-Public Use
  Company Number: PHBS2007BR09450

PATIENT
  Age: 2 Month
  Sex: Female

DRUGS (1)
  1. ZADITEN [Suspect]
     Indication: HYPERSENSITIVITY
     Dosage: 2.5 ML, ONCE/SINGLE
     Route: 048
     Dates: start: 20070531

REACTIONS (3)
  - APATHY [None]
  - ASTHENIA [None]
  - SOMNOLENCE [None]
